FAERS Safety Report 7969130-1 (Version None)
Quarter: 2011Q4

REPORT INFORMATION
  Report Type: 
  Country: None (occurrence: None)
  Receive Date: 20111209
  Receipt Date: 20111205
  Transmission Date: 20120403
  Serious: Yes (Other)
  Sender: FDA-Public Use
  Company Number: US-ROCHE-1019073

PATIENT
  Sex: Female
  Weight: 81.72 kg

DRUGS (18)
  1. ADVAIR DISKUS 100/50 [Concomitant]
  2. TOPROL-XL [Concomitant]
  3. ACTEMRA [Suspect]
     Indication: RHEUMATOID ARTHRITIS
     Route: 042
     Dates: start: 20110803
  4. METFORMIN HCL [Concomitant]
  5. NEURONTIN [Concomitant]
  6. STIBOCAPTATE [Concomitant]
  7. CYANOCOBALAMIN [Concomitant]
  8. COUMADIN [Concomitant]
  9. ZOCOR [Concomitant]
  10. BUTISOL [Concomitant]
     Indication: DEPRESSION
  11. PRILOSEC [Concomitant]
  12. PROVENTIL [Concomitant]
  13. SINGULAIR [Concomitant]
  14. ALLEGRA [Concomitant]
  15. CYCLOPHOSPHAMIDE [Concomitant]
     Indication: DEPRESSION
  16. CYMBALTA [Concomitant]
  17. IRON [Concomitant]
  18. LOTREL [Concomitant]

REACTIONS (4)
  - TEMPERATURE REGULATION DISORDER [None]
  - HEADACHE [None]
  - HYPERHIDROSIS [None]
  - AGITATED DEPRESSION [None]
